FAERS Safety Report 18623880 (Version 3)
Quarter: 2021Q2

REPORT INFORMATION
  Report Type: Spontaneous
  Country: US (occurrence: US)
  Receive Date: 20201216
  Receipt Date: 20210531
  Transmission Date: 20210717
  Serious: No
  Sender: FDA-Public Use
  Company Number: NVSC2020US333632

PATIENT
  Sex: Female

DRUGS (2)
  1. REFRESH OPTIVE ADVANCED [Suspect]
     Active Substance: CARBOXYMETHYLCELLULOSE SODIUM\GLYCERIN\POLYSORBATE 80
     Indication: PRODUCT USED FOR UNKNOWN INDICATION
     Dosage: UNK (LAST NIGHT)
     Route: 065
  2. PATADAY [Suspect]
     Active Substance: OLOPATADINE HYDROCHLORIDE
     Indication: EYE ALLERGY
     Dosage: UNK, QD
     Route: 065

REACTIONS (2)
  - Eye discharge [Recovering/Resolving]
  - Product use complaint [Recovering/Resolving]
